FAERS Safety Report 5132879-2 (Version None)
Quarter: 2006Q4

REPORT INFORMATION
  Report Type: 
  Country: None (occurrence: None)
  Receive Date: 20061023
  Receipt Date: 20061016
  Transmission Date: 20070319
  Serious: Yes (Death)
  Sender: FDA-Public Use
  Company Number: ES-JNJFOC-20061003412

PATIENT

DRUGS (8)
  1. ORTHOCLONE OKT3 [Suspect]
     Indication: PROPHYLAXIS AGAINST TRANSPLANT REJECTION
     Route: 040
  2. HYDROCORTISONE ACETATE [Concomitant]
     Indication: PREMEDICATION
     Route: 042
  3. DEXCLORPHENIRAMINE [Concomitant]
     Indication: PREMEDICATION
     Route: 042
  4. RANITIDINE [Concomitant]
     Indication: PREMEDICATION
     Route: 042
  5. ACETAMINOPHEN [Concomitant]
     Indication: PREMEDICATION
  6. CYCLOSPORINE [Concomitant]
     Indication: IMMUNOSUPPRESSION
  7. MMF [Concomitant]
     Indication: IMMUNOSUPPRESSION
     Route: 048
  8. PREDNISONE TAB [Concomitant]
     Indication: IMMUNOSUPPRESSION
     Route: 048

REACTIONS (1)
  - PNEUMONIA [None]
